FAERS Safety Report 6519720-8 (Version None)
Quarter: 2009Q4

REPORT INFORMATION
  Report Type: 
  Country: None (occurrence: None)
  Receive Date: 20091228
  Receipt Date: 20091216
  Transmission Date: 20100525
  Serious: Yes (Hospitalization)
  Sender: FDA-Public Use
  Company Number: JP-PFIZER INC-2009300443

PATIENT
  Age: 41 Year
  Sex: Female
  Weight: 86.5 kg

DRUGS (9)
  1. SOMATROPIN [Suspect]
     Indication: GROWTH HORMONE DEFICIENCY
     Dosage: 1.4 MG, WEEKLY, 7 TIMES PER WEEK
     Route: 058
     Dates: start: 20060908, end: 20070228
  2. ALFAROL [Concomitant]
     Dosage: UNK
     Route: 048
     Dates: start: 19961116
  3. LEDERCORT [Concomitant]
     Dosage: UNK
     Route: 048
     Dates: start: 19990206
  4. MERCAZOLE [Concomitant]
     Dosage: UNK
     Route: 048
     Dates: start: 20050921
  5. THYRADIN S [Concomitant]
     Dosage: UNK
     Route: 048
     Dates: start: 19950515
  6. SOPHIA A [Concomitant]
     Dosage: UNK
     Route: 048
     Dates: start: 19971201
  7. CORTRIL [Concomitant]
     Dosage: UNK
     Route: 048
     Dates: start: 19950807
  8. DESMOPRESSIN ACETATE [Concomitant]
     Dosage: UNK
     Route: 045
     Dates: start: 19950710
  9. HALCION [Concomitant]
     Dosage: UNK
     Route: 048
     Dates: start: 19960710

REACTIONS (1)
  - INTRACRANIAL TUMOUR HAEMORRHAGE [None]
